FAERS Safety Report 5342146-X (Version None)
Quarter: 2007Q2

REPORT INFORMATION
  Report Type: 
  Country: None (occurrence: None)
  Receive Date: 20070601
  Receipt Date: 20070523
  Transmission Date: 20071010
  Serious: Yes (Life-Threatening, Hospitalization, Disabling, Other)
  Sender: FDA-Public Use
  Company Number: A0652676A

PATIENT
  Age: 29 Year
  Sex: Female

DRUGS (3)
  1. PARNATE [Suspect]
     Indication: DEPRESSION
     Dosage: 40MG PER DAY
     Route: 048
     Dates: start: 20070201, end: 20070521
  2. TPN [Suspect]
  3. DIET PILL [Suspect]

REACTIONS (2)
  - BRAIN OPERATION [None]
  - HYPERTENSIVE CRISIS [None]
